FAERS Safety Report 6802189-3 (Version None)
Quarter: 2010Q2

REPORT INFORMATION
  Report Type: 
  Country: None (occurrence: None)
  Receive Date: 20100629
  Receipt Date: 20080322
  Transmission Date: 20101027
  Serious: No
  Sender: FDA-Public Use
  Company Number: US-PFIZER INC-2007064885

PATIENT
  Sex: Male
  Weight: 63.636 kg

DRUGS (6)
  1. METHYLPREDNISOLONE 16MG TAB [Suspect]
     Indication: SINUSITIS
     Route: 048
     Dates: start: 20070618, end: 20070621
  2. DITROPAN XL [Concomitant]
  3. MICARDIS [Concomitant]
  4. WELCHOL [Concomitant]
  5. LOTREL [Concomitant]
  6. FLUOXETINE [Concomitant]

REACTIONS (2)
  - INSOMNIA [None]
  - PAIN [None]
